FAERS Safety Report 4834772-9 (Version None)
Quarter: 2005Q4

REPORT INFORMATION
  Report Type: 
  Country: None (occurrence: None)
  Receive Date: 20051122
  Receipt Date: 20051013
  Transmission Date: 20060501
  Serious: Yes (Life-Threatening)
  Sender: FDA-Public Use
  Company Number: US-BRISTOL-MYERS SQUIBB COMPANY-13144092

PATIENT
  Age: 55 Year
  Sex: Female

DRUGS (3)
  1. PRAVACHOL [Suspect]
  2. ZETIA [Concomitant]
  3. NIACIN [Concomitant]

REACTIONS (1)
  - ANGIONEUROTIC OEDEMA [None]
